FAERS Safety Report 20165843 (Version 2)
Quarter: 2021Q4

REPORT INFORMATION
  Report Type: Report from Study
  Country: JP (occurrence: JP)
  Receive Date: 20211209
  Receipt Date: 20211216
  Transmission Date: 20220303
  Serious: No
  Sender: FDA-Public Use
  Company Number: JP-RPC01-3103-1531001-20211130-0001SG

PATIENT
  Age: 65 Year
  Sex: Female
  Weight: 58 kg

DRUGS (1)
  1. OZANIMOD [Suspect]
     Active Substance: OZANIMOD
     Indication: Colitis
     Dosage: 1 CAPSULE X 1 X 1 DAYS
     Route: 048
     Dates: start: 20210702, end: 20210705

REACTIONS (1)
  - Herpes zoster [Not Recovered/Not Resolved]

NARRATIVE: CASE EVENT DATE: 20211129
